FAERS Safety Report 4950490-0 (Version None)
Quarter: 2006Q1

REPORT INFORMATION
  Report Type: 
  Country: None (occurrence: None)
  Receive Date: 20060322
  Receipt Date: 20060216
  Transmission Date: 20060701
  Serious: Yes (Hospitalization)
  Sender: FDA-Public Use
  Company Number: FR-GLAXOSMITHKLINE-B0413189A

PATIENT
  Age: 42 Year
  Sex: Male

DRUGS (8)
  1. ZOVIRAX [Suspect]
     Indication: MENINGOENCEPHALITIS HERPETIC
     Dosage: 15MGK THREE TIMES PER DAY
     Route: 042
     Dates: start: 20060109, end: 20060129
  2. CLAFORAN [Concomitant]
     Dates: start: 20060107, end: 20060110
  3. FOSFOMYCINE [Concomitant]
     Dates: start: 20060107, end: 20060110
  4. FLAGYL [Concomitant]
     Dates: start: 20060107, end: 20060110
  5. DEPAKENE [Concomitant]
     Dosage: 1.5G PER DAY
     Route: 048
     Dates: start: 20060109
  6. DAFALGAN [Concomitant]
     Dosage: 4G PER DAY
     Dates: start: 20060109
  7. SPASFON [Concomitant]
     Route: 048
     Dates: start: 20060109
  8. IMODIUM [Concomitant]
     Dosage: 3G PER DAY
     Dates: start: 20060109

REACTIONS (5)
  - BLOOD POTASSIUM INCREASED [None]
  - CONFUSIONAL STATE [None]
  - HEADACHE [None]
  - NEUROTOXICITY [None]
  - RENAL FAILURE ACUTE [None]
